FAERS Safety Report 15206442 (Version 1)
Quarter: 2018Q3

REPORT INFORMATION
  Report Type: Spontaneous
  Country: US (occurrence: US)
  Receive Date: 20180727
  Receipt Date: 20180727
  Transmission Date: 20181010
  Serious: No
  Sender: FDA-Public Use
  Company Number: US-TEVA-2018-US-933211

PATIENT

DRUGS (1)
  1. ADDERALL [Suspect]
     Active Substance: AMPHETAMINE ASPARTATE\AMPHETAMINE SULFATE\DEXTROAMPHETAMINE SACCHARATE\DEXTROAMPHETAMINE SULFATE

REACTIONS (7)
  - Anxiety [Recovering/Resolving]
  - Vision blurred [Recovering/Resolving]
  - Palpitations [Recovering/Resolving]
  - Blood pressure increased [Recovering/Resolving]
  - Agitation [Recovering/Resolving]
  - Headache [Recovering/Resolving]
  - Confusional state [Recovering/Resolving]
